FAERS Safety Report 6847314-3 (Version None)
Quarter: 2010Q3

REPORT INFORMATION
  Report Type: 
  Country: None (occurrence: None)
  Receive Date: 20100716
  Receipt Date: 20100706
  Transmission Date: 20110219
  Serious: Yes (Other)
  Sender: FDA-Public Use
  Company Number: SE-JNJFOC-20061106212

PATIENT
  Sex: Female

DRUGS (11)
  1. REMICADE [Suspect]
     Indication: RHEUMATOID ARTHRITIS
     Dosage: 2ND INFUSION ADMINISTERED ON UNSPECIFIED DATE
     Route: 042
  2. REMICADE [Suspect]
     Route: 042
  3. REMICADE [Suspect]
     Route: 042
  4. ALVEDON [Concomitant]
  5. PLENDIL [Concomitant]
  6. CALCICHEW D3 [Concomitant]
  7. LEVOTHYROXINE SODIUM [Concomitant]
  8. SALURES [Concomitant]
  9. POTASSIUM CHLORIDE [Concomitant]
  10. IBRUPROFEN [Concomitant]
  11. TROMBYL [Concomitant]

REACTIONS (2)
  - INFUSION RELATED REACTION [None]
  - TOXIC SKIN ERUPTION [None]
